FAERS Safety Report 25423899 (Version 1)
Quarter: 2025Q2

REPORT INFORMATION
  Report Type: Report from Study
  Country: US (occurrence: US)
  Receive Date: 20250611
  Receipt Date: 20250611
  Transmission Date: 20250717
  Serious: Yes (Disabling)
  Sender: GILEAD
  Company Number: US-GILEAD-2025-0704998

PATIENT
  Age: 49 Year
  Sex: Male

DRUGS (5)
  1. AZTREONAM LYSINE [Suspect]
     Active Substance: AZTREONAM LYSINE
     Indication: Cystic fibrosis lung
     Dosage: 75 MG, TID (28 DAYS ON + 28 DAYS OFF)
     Route: 055
     Dates: start: 20241029
  2. AZTREONAM LYSINE [Suspect]
     Active Substance: AZTREONAM LYSINE
     Indication: Cystic fibrosis
     Dosage: RECONSTITUTE WITH PROVIDED DILUENT AND INHALE THE CONTENTS OF 1 VIAL VIA PARI ALTERA NEBULIZER 3 TIM
     Route: 055
     Dates: start: 20241029
  3. TRIKAFTA [Suspect]
     Active Substance: ELEXACAFTOR\IVACAFTOR\TEZACAFTOR
     Indication: Cystic fibrosis lung
     Dosage: TAKE 2 ORANGE TABLETS BY MOUTH IN THE MORNING AND 1 LIGHT BLUE TABLET IN THE EVENING
     Route: 048
     Dates: start: 20241126
  4. TRIKAFTA [Suspect]
     Active Substance: ELEXACAFTOR\IVACAFTOR\TEZACAFTOR
     Indication: Cystic fibrosis
     Dosage: 2 ORANGE TABLETS BY MOUTH IN THE MORNING AND 1 LIGHT BLUE TABLET IN THE EVENING
     Route: 048
     Dates: start: 20241124
  5. ALYFTREK [Suspect]
     Active Substance: DEUTIVACAFTOR\TEZACAFTOR\VANZACAFTOR
     Indication: Cystic fibrosis lung
     Dosage: 20/100/250M BY MOUTH 1 TIME A DAY
     Route: 048
     Dates: start: 20250515

REACTIONS (2)
  - Insomnia [Unknown]
  - Fatigue [Unknown]
